FAERS Safety Report 24843099 (Version 2)
Quarter: 2025Q1

REPORT INFORMATION
  Report Type: Report from Study
  Country: US (occurrence: US)
  Receive Date: 20250115
  Receipt Date: 20250120
  Transmission Date: 20250409
  Serious: Yes (Hospitalization, Other)
  Sender: ABBVIE
  Company Number: US-ABBVIE-6084362

PATIENT
  Age: 70 Year
  Sex: Male

DRUGS (3)
  1. DUOPA [Suspect]
     Active Substance: CARBIDOPA\LEVODOPA
     Indication: Parkinson^s disease
     Route: 050
  2. DUOPA [Suspect]
     Active Substance: CARBIDOPA\LEVODOPA
     Route: 050
  3. RYTARY [Concomitant]
     Active Substance: CARBIDOPA\LEVODOPA
     Indication: Parkinson^s disease

REACTIONS (6)
  - Embedded device [Not Recovered/Not Resolved]
  - Device related infection [Unknown]
  - Embedded device [Recovered/Resolved]
  - Stoma site erythema [Recovering/Resolving]
  - Stoma site discharge [Recovered/Resolved]
  - Stoma site infection [Recovered/Resolved]

NARRATIVE: CASE EVENT DATE: 20241201
